FAERS Safety Report 7300026 (Version 3)
Quarter: 2018Q4

REPORT INFORMATION
  Report Type: Spontaneous
  Country: JP (occurrence: JP)
  Receive Date: 20100301
  Receipt Date: 20181010
  Transmission Date: 20190205
  Serious: Yes (Other)
  Sender: FDA-Public Use
  Company Number: PHHY2010JP06456

PATIENT
  Age: 43 Year
  Sex: Female
  Weight: 55 kg

DRUGS (1)
  1. CO-DIOVAN [Suspect]
     Active Substance: HYDROCHLOROTHIAZIDE\VALSARTAN
     Indication: HYPERTENSION
     Dosage: 1 DF, QD
     Route: 048
     Dates: start: 20091210, end: 20100129

REACTIONS (7)
  - Pigmentation disorder [Unknown]
  - Skin exfoliation [Recovering/Resolving]
  - Photosensitivity reaction [Recovering/Resolving]
  - Erythema [Recovering/Resolving]
  - Pruritus generalised [Recovering/Resolving]
  - Swelling [Recovering/Resolving]
  - Rash papular [Recovering/Resolving]

NARRATIVE: CASE EVENT DATE: 20100113
